FAERS Safety Report 19308625 (Version 7)
Quarter: 2022Q3

REPORT INFORMATION
  Report Type: Report from Study
  Country: CR (occurrence: None)
  Receive Date: 20210526
  Receipt Date: 20220723
  Transmission Date: 20221027
  Serious: Yes (Hospitalization)
  Sender: FDA-Public Use
  Company Number: CR-ROCHE-2836082

PATIENT
  Age: 73 Year
  Sex: Female
  Weight: 54 kg

DRUGS (11)
  1. COBIMETINIB [Suspect]
     Active Substance: COBIMETINIB
     Indication: Non-small cell lung cancer metastatic
     Dosage: DATE OF MOST RECENT DOSE OF COBIMETINIB (60 MG) PRIOR TO AE/SAE ONSET: 20/MAY/2021
     Route: 048
     Dates: start: 20210507
  2. VEMURAFENIB [Suspect]
     Active Substance: VEMURAFENIB
     Indication: Non-small cell lung cancer metastatic
     Dosage: DATE OF MOST RECENT DOSE OF VEMURAFENIB (960 MG) PRIOR TO AE/SAE ONSET: 20/MAY/2021
     Route: 048
     Dates: start: 20210507
  3. AMLODIPINE [Concomitant]
     Active Substance: AMLODIPINE BESYLATE
     Indication: Hypertension
     Route: 048
     Dates: start: 2011
  4. LOVASTATIN [Concomitant]
     Active Substance: LOVASTATIN
     Indication: Dyslipidaemia
     Dates: start: 2011
  5. FAMOTIDINA [Concomitant]
     Indication: Gastrooesophageal reflux disease
     Route: 048
     Dates: start: 2011
  6. TRAMADOL [Concomitant]
     Active Substance: TRAMADOL
     Indication: Bone pain
     Route: 048
     Dates: start: 20210428, end: 20210708
  7. BISOPROLOL [Concomitant]
     Active Substance: BISOPROLOL
     Indication: Ventricular extrasystoles
     Route: 048
     Dates: start: 20210521
  8. LEVOTHYROXINE [Concomitant]
     Active Substance: LEVOTHYROXINE
     Indication: Hypothyroidism
     Route: 048
  9. FARBICIL [Concomitant]
     Indication: Dermatitis
     Dosage: DOSE ; 1 OTHER
     Route: 061
     Dates: start: 20210826
  10. LACTIBON FEM [Concomitant]
     Indication: Dermatitis
     Dosage: DOSE: 1 OTHER
     Route: 061
     Dates: start: 20210826
  11. DERMALAC [Concomitant]
     Indication: Dermatitis
     Dosage: DOSE: 1 OTHER
     Route: 061
     Dates: start: 20210826

REACTIONS (1)
  - Oesophagitis [Not Recovered/Not Resolved]

NARRATIVE: CASE EVENT DATE: 20210521
